FAERS Safety Report 7322874-7 (Version None)
Quarter: 2011Q1

REPORT INFORMATION
  Report Type: 
  Country: None (occurrence: None)
  Receive Date: 20110301
  Receipt Date: 20110221
  Transmission Date: 20110831
  Serious: Yes (Other)
  Sender: FDA-Public Use
  Company Number: IT-JNJFOC-20110206422

PATIENT
  Sex: Female

DRUGS (1)
  1. LEVOXACIN [Suspect]
     Indication: BRONCHITIS
     Route: 048

REACTIONS (2)
  - DERMATITIS EXFOLIATIVE [None]
  - DERMATITIS BULLOUS [None]
